FAERS Safety Report 17278294 (Version 7)
Quarter: 2020Q1

REPORT INFORMATION
  Report Type: Spontaneous
  Country: CA (occurrence: CA)
  Receive Date: 20200116
  Receipt Date: 20200331
  Transmission Date: 20200409
  Serious: Yes (Hospitalization, Other)
  Sender: FDA-Public Use
  Company Number: CA-PFIZER INC-2020008590

PATIENT
  Age: 31 Year
  Sex: Female

DRUGS (13)
  1. SUTENT [Suspect]
     Active Substance: SUNITINIB MALATE
     Indication: RENAL CELL CARCINOMA
     Dosage: 50 MG, CYCLIC (ONE TIME EACH DAY, TAKE 2 WEEKS ON, THEN 1 WEEK OFF, EVERY 6 WEEKS)
     Route: 048
     Dates: start: 20200108, end: 2020
  2. METHANOL [Concomitant]
     Active Substance: METHYL ALCOHOL
     Dosage: 2.5 MG, 3X/DAY
  3. DULCOLAX PI [Concomitant]
     Dosage: UNK
     Route: 054
  4. METONIA [Concomitant]
     Active Substance: METOCLOPRAMIDE
     Dosage: 5 MG, 4X/DAY
  5. SENNOKOTT [Concomitant]
     Dosage: UNK UNK, 3X/DAY
  6. SUTENT [Suspect]
     Active Substance: SUNITINIB MALATE
     Dosage: 37.5 MG, CYCLIC (14 DAYS ON, 7 DAYS OFF)
     Route: 048
     Dates: start: 2020, end: 2020
  7. PANTOPRAZOLE [Concomitant]
     Active Substance: PANTOPRAZOLE
     Dosage: 40 MG, UNK
  8. EDOXABAN [Concomitant]
     Active Substance: EDOXABAN TOSYLATE
     Dosage: 60 MG, UNK
     Dates: start: 20200108
  9. PREGABALIN. [Concomitant]
     Active Substance: PREGABALIN
     Dosage: 75 MG, 2X/DAY
  10. ZOFRAN [Concomitant]
     Active Substance: ONDANSETRON HYDROCHLORIDE
     Dosage: 8 MG, AS NEEDED
  11. NABILONE [Concomitant]
     Active Substance: NABILONE
     Dosage: 1 MG, UNK
  12. DEXAMETHASONE. [Concomitant]
     Active Substance: DEXAMETHASONE
     Dosage: 4 MG, TAPERING OFF
  13. TRAZODONE [Concomitant]
     Active Substance: TRAZODONE HYDROCHLORIDE
     Dosage: 100 MG, HS (BEDTIME)

REACTIONS (3)
  - Paralysis [Unknown]
  - Neutropenia [Unknown]
  - Thrombocytopenia [Unknown]

NARRATIVE: CASE EVENT DATE: 2020
